FAERS Safety Report 8611832-8 (Version None)
Quarter: 2012Q3

REPORT INFORMATION
  Report Type: 
  Country: None (occurrence: None)
  Receive Date: 20120822
  Receipt Date: 20120816
  Transmission Date: 20120928
  Serious: Yes (Other)
  Sender: FDA-Public Use
  Company Number: ZA-JNJFOC-20120808964

PATIENT
  Age: 35 Year
  Sex: Female

DRUGS (1)
  1. TRAMADOL HYDROCHLORIDE/ACETAMINOPHEN [Suspect]
     Indication: ENCEPHALITIS
     Route: 048

REACTIONS (2)
  - ABDOMINAL DISTENSION [None]
  - SWELLING FACE [None]
